FAERS Safety Report 9286009 (Version 2)
Quarter: 2013Q2

REPORT INFORMATION
  Report Type: Spontaneous
  Country: US (occurrence: US)
  Receive Date: 20130513
  Receipt Date: 20130523
  Transmission Date: 20140414
  Serious: No
  Sender: FDA-Public Use
  Company Number: US-ASTRAZENECA-2011SE03957

PATIENT
  Age: 51 Year
  Sex: Female

DRUGS (6)
  1. CRESTOR [Suspect]
     Route: 048
  2. NEXIUM [Suspect]
     Route: 048
  3. LIPITOR [Concomitant]
  4. PREVACID [Concomitant]
  5. ZOCOR [Concomitant]
  6. PRAVASTATIN [Concomitant]

REACTIONS (3)
  - Malaise [Unknown]
  - Blood cholesterol increased [Unknown]
  - Drug ineffective [Unknown]
